FAERS Safety Report 14571650 (Version 1)
Quarter: 2018Q1

REPORT INFORMATION
  Report Type: Spontaneous
  Country: US (occurrence: US)
  Receive Date: 20180226
  Receipt Date: 20180226
  Transmission Date: 20180509
  Serious: No
  Sender: FDA-Public Use
  Company Number: US-PFIZER INC-2018076942

PATIENT
  Age: 30 Year
  Sex: Female

DRUGS (1)
  1. EUCRISA [Suspect]
     Active Substance: CRISABOROLE
     Indication: PSORIASIS
     Dosage: UNK

REACTIONS (3)
  - Burning sensation [Recovered/Resolved]
  - Pain [Recovered/Resolved]
  - Drug effective for unapproved indication [Unknown]
